FAERS Safety Report 8822678 (Version 1)
Quarter: 2012Q4

REPORT INFORMATION
  Report Type: 
  Country: ES (occurrence: ES)
  Receive Date: 20121003
  Receipt Date: 20121003
  Transmission Date: 20130627
  Serious: Yes (Death, Other)
  Sender: FDA-Public Use
  Company Number: ES-CELGENEUS-144-21880-12093272

PATIENT

DRUGS (2)
  1. REVLIMID [Suspect]
     Indication: MULTIPLE MYELOMA
     Dosage: 25 Milligram
     Route: 048
  2. REVLIMID [Suspect]
     Indication: MDS
     Dosage: 10 Milligram
     Route: 048

REACTIONS (8)
  - Haematotoxicity [Unknown]
  - Death [Fatal]
  - Renal failure [Unknown]
  - Myelodysplastic syndrome transformation [Unknown]
  - Acute myeloid leukaemia [Unknown]
  - Respiratory tract infection [Unknown]
  - Diarrhoea [Unknown]
  - Plasma cell myeloma [Unknown]
